FAERS Safety Report 4638214-8 (Version None)
Quarter: 2005Q2

REPORT INFORMATION
  Report Type: 
  Country: None (occurrence: None)
  Receive Date: 20050418
  Receipt Date: 20050323
  Transmission Date: 20051028
  Serious: No
  Sender: FDA-Public Use
  Company Number: USA050394081

PATIENT
  Sex: Male

DRUGS (2)
  1. STRATTERA [Suspect]
     Dosage: 80 MG
  2. TYLENOL [Concomitant]

REACTIONS (2)
  - ALCOHOL USE [None]
  - HEPATIC ENZYME INCREASED [None]
